FAERS Safety Report 5897261-9 (Version None)
Quarter: 2008Q3

REPORT INFORMATION
  Report Type: 
  Country: None (occurrence: None)
  Receive Date: 20080923
  Receipt Date: 20080909
  Transmission Date: 20090109
  Serious: Yes (Hospitalization)
  Sender: FDA-Public Use
  Company Number: 2008S1015905

PATIENT
  Age: 17 Year
  Sex: Male

DRUGS (1)
  1. ISOTRETINOIN [Suspect]
     Indication: ACNE CYSTIC
     Dosage: 10 MG;

REACTIONS (8)
  - ARTHRALGIA [None]
  - CUTANEOUS VASCULITIS [None]
  - EPISTAXIS [None]
  - GASTROINTESTINAL DISORDER [None]
  - GLOMERULONEPHRITIS [None]
  - NIGHT SWEATS [None]
  - PETECHIAE [None]
  - PYOGENIC GRANULOMA [None]
